FAERS Safety Report 4331679-0 (Version None)
Quarter: 2004Q2

REPORT INFORMATION
  Report Type: 
  Country: None (occurrence: None)
  Receive Date: 20040401
  Receipt Date: 20040401
  Transmission Date: 20050107
  Serious: Yes (Death)
  Sender: FDA-Public Use
  Company Number: None

PATIENT
  Age: 35 Day
  Sex: Male

DRUGS (21)
  1. CARBOPLATIN [Suspect]
     Indication: NEUROBLASTOMA
     Dosage: 60 MG IV
     Route: 042
     Dates: start: 20040218
  2. ETOPOSIDE (BP-16, VP) [Suspect]
     Indication: NEUROBLASTOMA
     Dosage: 14 MG PER DAY IV
     Route: 042
     Dates: start: 20040218, end: 20040220
  3. AMLODIPINE [Concomitant]
  4. AMPICILLIN [Concomitant]
  5. CLOXACILLIN [Concomitant]
  6. DEXAMETHASONE [Concomitant]
  7. FLAGYL [Concomitant]
  8. FLUCONAZOLE [Concomitant]
  9. NEUPOGEN [Concomitant]
  10. GENTAMICIN [Concomitant]
  11. HYDRALAZINE HCL [Concomitant]
  12. KI [Concomitant]
  13. LASIX [Concomitant]
  14. MORPHINE [Concomitant]
  15. NIFEDAPINE [Concomitant]
  16. ONDANSETRON HCL [Concomitant]
  17. PIPERACILLIN [Concomitant]
  18. PIPATZO [Concomitant]
  19. RANITIDINE [Concomitant]
  20. SEPTRA [Concomitant]
  21. VERSED [Concomitant]

REACTIONS (5)
  - ASTHENIA [None]
  - GENERAL PHYSICAL HEALTH DETERIORATION [None]
  - HYPERTENSION NEONATAL [None]
  - NEONATAL DISORDER [None]
  - NUCLEAR MAGNETIC RESONANCE IMAGING ABNORMAL [None]
